FAERS Safety Report 16766165 (Version 2)
Quarter: 2020Q2

REPORT INFORMATION
  Report Type: Spontaneous
  Country: DE (occurrence: DE)
  Receive Date: 20190903
  Receipt Date: 20200520
  Transmission Date: 20200713
  Serious: Yes (Congenital Anomaly, Other)
  Sender: FDA-Public Use
  Company Number: DE-DRREDDYS-GER/GER/12/0023458

PATIENT
  Age: 9 Month
  Sex: Male
  Weight: 3.6 kg

DRUGS (6)
  1. LAMOTRIGINE. [Suspect]
     Active Substance: LAMOTRIGINE
     Indication: PRODUCT USED FOR UNKNOWN INDICATION
     Dosage: 225-225-250MG
     Route: 064
     Dates: start: 20091111, end: 20100811
  2. VIMPAT [Suspect]
     Active Substance: LACOSAMIDE
     Indication: PRODUCT USED FOR UNKNOWN INDICATION
     Route: 064
     Dates: start: 20091111, end: 20100811
  3. VIMPAT [Suspect]
     Active Substance: LACOSAMIDE
     Dosage: MATERNAL DOSE: 200 [MG/D (100-0-100) ]/ FOR ONE YEAR
     Route: 062
     Dates: start: 200911
  4. FOLSAURE [Concomitant]
     Active Substance: FOLIC ACID
     Indication: PRODUCT USED FOR UNKNOWN INDICATION
     Dosage: 5 [MG/D ]/ ALSO PRECONCEPTIONAL
     Route: 064
  5. LAMOTRIGINE. [Suspect]
     Active Substance: LAMOTRIGINE
     Dosage: MATERNAL DOSE: 700 [MG/D (225-225-250) ]/ FOR TWO YEARS
     Route: 064
     Dates: start: 20100811
  6. VIMPAT [Suspect]
     Active Substance: LACOSAMIDE
     Dosage: MATERNAL DOSE: 200 [MG/D (100-0-100) ]/ FOR ONE YEAR
     Route: 064
     Dates: start: 20100811

REACTIONS (5)
  - Bradycardia neonatal [Recovered/Resolved]
  - Atrial septal defect [Unknown]
  - Hyperbilirubinaemia [Unknown]
  - Coarctation of the aorta [Unknown]
  - Foetal exposure during pregnancy [Unknown]

NARRATIVE: CASE EVENT DATE: 200911
